FAERS Safety Report 6795492-7 (Version None)
Quarter: 2010Q2

REPORT INFORMATION
  Report Type: 
  Country: None (occurrence: None)
  Receive Date: 20100625
  Receipt Date: 20100615
  Transmission Date: 20101027
  Serious: Yes (Hospitalization)
  Sender: FDA-Public Use
  Company Number: PHHY2010US29222

PATIENT
  Sex: Male
  Weight: 80.726 kg

DRUGS (13)
  1. AFINITOR [Suspect]
     Indication: PANCREATITIS
     Dosage: 10 MG DAILY
     Route: 048
     Dates: start: 20100305, end: 20100409
  2. FENTANYL [Concomitant]
  3. OXYCONTIN [Concomitant]
  4. FENTORA [Concomitant]
  5. CARDURA [Concomitant]
     Dosage: 8 MG DAILY
     Route: 048
  6. LASIX [Concomitant]
     Dosage: 20MG DAILY
     Route: 048
  7. COMPAZINE [Concomitant]
     Dosage: UNK
  8. ZANTAC [Concomitant]
     Dosage: 150 MG, BID
     Route: 048
  9. PERCOCET [Concomitant]
     Dosage: PRN
     Route: 048
  10. CELEXA [Concomitant]
  11. XANAX [Concomitant]
     Dosage: 0.5 MG, UNK
  12. ATENOLOL [Concomitant]
     Dosage: 50 MG DAILY
     Route: 048
  13. CALCIUM WITH VITAMIN D [Concomitant]
     Dosage: UNK

REACTIONS (3)
  - ASTHENIA [None]
  - CONFUSIONAL STATE [None]
  - TRANSIENT ISCHAEMIC ATTACK [None]
